FAERS Safety Report 17911423 (Version 1)
Quarter: 2020Q2

REPORT INFORMATION
  Report Type: Spontaneous
  Country: US (occurrence: US)
  Receive Date: 20200617
  Receipt Date: 20200617
  Transmission Date: 20200714
  Serious: Yes (Hospitalization)
  Sender: FDA-Public Use
  Company Number: None

PATIENT
  Sex: Female

DRUGS (36)
  1. PROMETHAZINE [Concomitant]
     Active Substance: PROMETHAZINE HYDROCHLORIDE
  2. SMZ/TMP [Concomitant]
     Active Substance: SULFAMETHOXAZOLE\TRIMETHOPRIM
  3. AMOX/K CLAV [Concomitant]
     Active Substance: AMOXICILLIN\CLAVULANATE POTASSIUM
  4. BUT/APAP/CAF [Concomitant]
  5. HYDROXYZ HCL [Concomitant]
     Active Substance: HYDROXYZINE HYDROCHLORIDE
  6. DEXTROAMPHET SACCHARAT, AMPHET ASPARTATE, DEXTROAMPHET SULFATE AND AMPHET SULFAT [Concomitant]
     Active Substance: AMPHETAMINE ASPARTATE\AMPHETAMINE SULFATE\DEXTROAMPHETAMINE SACCHARATE\DEXTROAMPHETAMINE SULFATE
  7. COMBIVENT [Concomitant]
     Active Substance: ALBUTEROL SULFATE\IPRATROPIUM BROMIDE
  8. PANTOPRAZOLE [Concomitant]
     Active Substance: PANTOPRAZOLE
  9. PREDNISONE. [Concomitant]
     Active Substance: PREDNISONE
  10. TRAZODONE [Concomitant]
     Active Substance: TRAZODONE HYDROCHLORIDE
  11. CYCLOBENZAPR [Concomitant]
     Active Substance: CYCLOBENZAPRINE
  12. CYPROHEPTAD [Concomitant]
  13. EPINEPHRINE. [Concomitant]
     Active Substance: EPINEPHRINE
  14. POT CL MICRO [Concomitant]
  15. SINGULAIR [Concomitant]
     Active Substance: MONTELUKAST SODIUM
  16. VITAMIN D [Concomitant]
     Active Substance: VITAMIN D NOS
  17. ZANTAC [Concomitant]
     Active Substance: RANITIDINE HYDROCHLORIDE
  18. ADDERALL XR [Concomitant]
     Active Substance: AMPHETAMINE ASPARTATE\AMPHETAMINE SULFATE\DEXTROAMPHETAMINE SACCHARATE\DEXTROAMPHETAMINE SULFATE
  19. CROMOLYN SOD [Concomitant]
     Active Substance: CROMOLYN SODIUM
  20. DICYCLOMINE [Concomitant]
     Active Substance: DICYCLOMINE HYDROCHLORIDE
  21. MONTELUKAST [Concomitant]
     Active Substance: MONTELUKAST SODIUM
  22. OCTREOTIDE 50MCG/ML SYR (10) [Suspect]
     Active Substance: OCTREOTIDE ACETATE
     Indication: METABOLIC SURGERY
     Dosage: ?          OTHER STRENGTH:50 UG/ML;?
     Route: 058
     Dates: start: 20200125
  23. APAP/CODEINE [Concomitant]
     Active Substance: ACETAMINOPHEN\CODEINE PHOSPHATE
  24. BUPRENORPHIN DIS [Concomitant]
  25. CHOLESTYRAM [Concomitant]
     Active Substance: CHOLESTYRAMINE
  26. HYDROCO/APAP [Concomitant]
     Active Substance: ACETAMINOPHEN\HYDROCODONE
  27. DESVENLAFAX [Concomitant]
  28. OCTREOTIDE 50MCG/ML SYR (80) [Suspect]
     Active Substance: OCTREOTIDE ACETATE
     Indication: METABOLIC SURGERY
     Dosage: ?          OTHER STRENGTH:50 UG/ML;?
     Route: 058
     Dates: start: 20200125
  29. SYMBICORT [Concomitant]
     Active Substance: BUDESONIDE\FORMOTEROL FUMARATE DIHYDRATE
  30. ZENPEP [Concomitant]
     Active Substance: PANCRELIPASE AMYLASE\PANCRELIPASE LIPASE\PANCRELIPASE PROTEASE
  31. MIDRODRINE [Concomitant]
  32. POT CHLORIDE [Concomitant]
     Active Substance: POTASSIUM CHLORIDE
  33. TINDAZOLE [Concomitant]
     Active Substance: TINIDAZOLE
  34. CEFPODOXIME [Concomitant]
     Active Substance: CEFPODOXIME
  35. DESMOPRESSIN [Concomitant]
     Active Substance: DESMOPRESSIN
  36. ONDANSETRON [Concomitant]
     Active Substance: ONDANSETRON

REACTIONS (3)
  - Diarrhoea [None]
  - Lower limb fracture [None]
  - Vomiting [None]
